FAERS Safety Report 19719418 (Version 1)
Quarter: 2021Q3

REPORT INFORMATION
  Report Type: Spontaneous
  Country: GB (occurrence: GB)
  Receive Date: 20210818
  Receipt Date: 20210818
  Transmission Date: 20211014
  Serious: Yes (Disabling)
  Sender: FDA-Public Use
  Company Number: GB-MYLANLABS-2021M1051456

PATIENT
  Age: 50 Year
  Sex: Male
  Weight: 86 kg

DRUGS (4)
  1. DOXYCYCLINE. [Suspect]
     Active Substance: DOXYCYCLINE
     Indication: LOWER RESPIRATORY TRACT INFECTION
     Dosage: 100 MILLIGRAM, QD
     Route: 048
     Dates: start: 20210730, end: 20210803
  2. WARFARIN [Interacting]
     Active Substance: WARFARIN
     Indication: ANTIPHOSPHOLIPID SYNDROME
  3. MST CONTINUS [Concomitant]
     Active Substance: MORPHINE SULFATE
     Indication: ILL-DEFINED DISORDER
     Dosage: UNK
  4. WARFARIN [Interacting]
     Active Substance: WARFARIN
     Indication: ANTICOAGULANT THERAPY
     Dosage: 5 MILLIGRAM (5MG AS PER INR)
     Route: 048
     Dates: start: 20201021

REACTIONS (2)
  - Drug interaction [Unknown]
  - Haemorrhage intracranial [Recovering/Resolving]

NARRATIVE: CASE EVENT DATE: 20210803
